FAERS Safety Report 13021004 (Version 1)
Quarter: 2016Q4

REPORT INFORMATION
  Report Type: Spontaneous
  Country: US (occurrence: US)
  Receive Date: 20161212
  Receipt Date: 20161212
  Transmission Date: 20170207
  Serious: No
  Sender: FDA-Public Use
  Company Number: None

PATIENT
  Age: 46 Year
  Sex: Female

DRUGS (1)
  1. GILENYA [Suspect]
     Active Substance: FINGOLIMOD HYDROCHLORIDE
     Indication: MULTIPLE SCLEROSIS
     Dosage: TAKE ONE CAPSULE (0.5MG)
     Route: 048
     Dates: start: 20161107, end: 20161117

REACTIONS (6)
  - Pleural effusion [None]
  - Heart rate increased [None]
  - Abasia [None]
  - Dyspnoea [None]
  - Musculoskeletal disorder [None]
  - Weight increased [None]

NARRATIVE: CASE EVENT DATE: 20161117
